FAERS Safety Report 9563227 (Version 1)
Quarter: 2013Q3

REPORT INFORMATION
  Report Type: Spontaneous
  Country: US (occurrence: US)
  Receive Date: 20130927
  Receipt Date: 20130927
  Transmission Date: 20140515
  Serious: No
  Sender: FDA-Public Use
  Company Number: US-BRISTOL-MYERS SQUIBB COMPANY-19127075

PATIENT
  Age: 70 Year
  Sex: Female

DRUGS (1)
  1. ONGLYZA TABS [Suspect]
     Indication: HYPERGLYCAEMIA
     Route: 048

REACTIONS (1)
  - Skin swelling [Recovered/Resolved]
